FAERS Safety Report 25602354 (Version 1)
Quarter: 2025Q3

REPORT INFORMATION
  Report Type: Spontaneous
  Country: AR (occurrence: AR)
  Receive Date: 20250724
  Receipt Date: 20250724
  Transmission Date: 20251021
  Serious: Yes (Other)
  Sender: SANDOZ
  Company Number: AR-SANDOZ-SDZ2025AR048893

PATIENT
  Age: 75 Year
  Sex: Female
  Weight: 75 kg

DRUGS (1)
  1. TREPROSTINIL [Suspect]
     Active Substance: TREPROSTINIL
     Indication: Pulmonary hypertension
     Route: 058
     Dates: start: 20250703

REACTIONS (4)
  - Infusion site pain [Recovering/Resolving]
  - Infusion site pain [Recovering/Resolving]
  - Pain [Not Recovered/Not Resolved]
  - Infusion site erythema [Recovered/Resolved]

NARRATIVE: CASE EVENT DATE: 20250704
